FAERS Safety Report 9831029 (Version 2)
Quarter: 2014Q1

REPORT INFORMATION
  Report Type: Report from Study
  Country: BD (occurrence: BD)
  Receive Date: 20140120
  Receipt Date: 20140120
  Transmission Date: 20141002
  Serious: Yes (Death, Hospitalization)
  Sender: FDA-Public Use
  Company Number: PHHY2014BD004980

PATIENT
  Age: 77 Year
  Sex: Male
  Weight: 68 kg

DRUGS (1)
  1. EXELON PATCH [Suspect]
     Indication: DEMENTIA
     Dosage: 9.5 MG, DAILY (10 CM)
     Route: 062
     Dates: start: 20130828

REACTIONS (5)
  - Cerebrovascular accident [Fatal]
  - Cerebral haemorrhage [Fatal]
  - Feeling abnormal [Fatal]
  - Hyperhidrosis [Fatal]
  - Headache [Fatal]
